FAERS Safety Report 6931160-6 (Version None)
Quarter: 2010Q3

REPORT INFORMATION
  Report Type: 
  Country: None (occurrence: None)
  Receive Date: 20100813
  Receipt Date: 20100804
  Transmission Date: 20110219
  Serious: Yes (Hospitalization, Other)
  Sender: FDA-Public Use
  Company Number: 2010US003143

PATIENT
  Age: 53 Year
  Sex: Male
  Weight: 90 kg

DRUGS (13)
  1. PROGRAF [Suspect]
     Indication: LIVER TRANSPLANT
     Dosage: 4 MG, UID/QD, ORAL
     Route: 048
     Dates: start: 19981213
  2. LANTUS [Concomitant]
  3. NOVOLOG [Concomitant]
  4. AMBIEN [Concomitant]
  5. DIOVAN [Concomitant]
  6. METOPROLOL TARTRATE [Concomitant]
  7. BACTRIM [Concomitant]
  8. HYDROCHLOROTHIAZIDE [Concomitant]
  9. LISINOPRIL [Concomitant]
  10. INDOMETHACIN [Concomitant]
  11. ZANAFLEX [Concomitant]
  12. CELLCEPT [Concomitant]
  13. ASPIRIN [Concomitant]

REACTIONS (5)
  - CEREBROVASCULAR ACCIDENT [None]
  - CORONARY ARTERY BYPASS [None]
  - FALL [None]
  - INCONTINENCE [None]
  - MITRAL VALVE REPLACEMENT [None]
